FAERS Safety Report 12467091 (Version 1)
Quarter: 2016Q2

REPORT INFORMATION
  Report Type: Spontaneous
  Country: US (occurrence: None)
  Receive Date: 20160614
  Receipt Date: 20160614
  Transmission Date: 20160815
  Serious: Yes (Life-Threatening, Other)
  Sender: FDA-Public Use
  Company Number: None

PATIENT
  Age: 78 Year
  Sex: Male
  Weight: 108.86 kg

DRUGS (4)
  1. CLOPIDOGREL, 75 MG [Suspect]
     Active Substance: CLOPIDOGREL BISULFATE
     Indication: STENT PLACEMENT
     Route: 048
  2. DIOVAN [Concomitant]
     Active Substance: VALSARTAN
  3. CPAP MACHINE [Concomitant]
  4. ASPRIN [Concomitant]
     Active Substance: ASPIRIN

REACTIONS (4)
  - Product substitution issue [None]
  - Dyspnoea [None]
  - Middle insomnia [None]
  - Choking [None]

NARRATIVE: CASE EVENT DATE: 20160529
